FAERS Safety Report 22345319 (Version 1)
Quarter: 2023Q2

REPORT INFORMATION
  Report Type: Report from Study
  Country: US (occurrence: None)
  Receive Date: 20230519
  Receipt Date: 20230519
  Transmission Date: 20230722
  Serious: Yes (Hospitalization)
  Sender: FDA-Public Use
  Company Number: US-Eisai Medical Research-EC-2023-140502

PATIENT
  Age: 60 Year
  Sex: Female
  Weight: 41.6 kg

DRUGS (12)
  1. LENVIMA [Suspect]
     Active Substance: LENVATINIB
     Indication: Renal cancer
     Route: 048
     Dates: start: 202212, end: 2023
  2. LENVIMA [Suspect]
     Active Substance: LENVATINIB
     Route: 048
     Dates: start: 2023
  3. KEYTRUDA [Suspect]
     Active Substance: PEMBROLIZUMAB
     Indication: Renal cancer
     Dosage: UNKNOWN DOSE AND FREQUENCY
     Route: 041
  4. ALPRAZOLAM [Concomitant]
     Active Substance: ALPRAZOLAM
  5. COREG CR [Concomitant]
     Active Substance: CARVEDILOL PHOSPHATE
  6. DOCUSATE SODIUM [Concomitant]
     Active Substance: DOCUSATE SODIUM
  7. LEVOTHYROXINE [Concomitant]
     Active Substance: LEVOTHYROXINE
  8. NITROGLYCERIN [Concomitant]
     Active Substance: NITROGLYCERIN
  9. NYSTATIN [Concomitant]
     Active Substance: NYSTATIN
  10. OXYCODONE [Concomitant]
     Active Substance: OXYCODONE
  11. XGEVA [Concomitant]
     Active Substance: DENOSUMAB
  12. XTAMPZA ER [Concomitant]
     Active Substance: OXYCODONE

REACTIONS (6)
  - Dehydration [Unknown]
  - Somnolence [Unknown]
  - Abdominal discomfort [Unknown]
  - Thyroid disorder [Unknown]
  - Pruritus genital [Unknown]
  - Decreased appetite [Unknown]

NARRATIVE: CASE EVENT DATE: 20230101
